FAERS Safety Report 24765696 (Version 1)
Quarter: 2024Q4

REPORT INFORMATION
  Report Type: Spontaneous
  Country: AU (occurrence: AU)
  Receive Date: 20241223
  Receipt Date: 20241223
  Transmission Date: 20250115
  Serious: Yes (Other)
  Sender: AUROBINDO
  Company Number: AU-AUROBINDO-AUR-APL-2024-062297

PATIENT
  Age: 63 Year
  Sex: Female

DRUGS (3)
  1. FULVESTRANT [Suspect]
     Active Substance: FULVESTRANT
     Indication: Breast cancer metastatic
     Dosage: UNK
     Route: 065
  2. INAVOLISIB [Suspect]
     Active Substance: INAVOLISIB
     Indication: Breast cancer metastatic
     Dosage: 9 MILLIGRAM, DAILY
     Route: 065
  3. INSULIN GLARGINE [Suspect]
     Active Substance: INSULIN GLARGINE
     Indication: Hyperglycaemia
     Dosage: 10 UNITS, DAILY
     Route: 065

REACTIONS (1)
  - Drug ineffective [Unknown]
